FAERS Safety Report 5085451-7 (Version None)
Quarter: 2006Q3

REPORT INFORMATION
  Report Type: 
  Country: None (occurrence: None)
  Receive Date: 20060816
  Receipt Date: 20060807
  Transmission Date: 20061208
  Serious: Yes (Life-Threatening)
  Sender: FDA-Public Use
  Company Number: 2006S1000158

PATIENT
  Age: 0 Year
  Sex: Male

DRUGS (1)
  1. INOMAX [Suspect]
     Indication: LUNG DISORDER
     Dosage: 5 PPM; INH_GAS; INH,; CONT
     Route: 055
     Dates: start: 20060414, end: 20060507

REACTIONS (2)
  - HYPOXIA [None]
  - NECROTISING COLITIS [None]
